FAERS Safety Report 10142222 (Version 52)
Quarter: 2024Q1

REPORT INFORMATION
  Report Type: Other
  Country: CA (occurrence: None)
  Receive Date: 20140430
  Receipt Date: 20240118
  Transmission Date: 20240409
  Serious: Yes (Hospitalization, Other)
  Sender: FDA-Public Use
  Company Number: CA-ROCHE-1319269

PATIENT
  Age: 52 Year
  Sex: Male
  Weight: 89.5 kg

DRUGS (28)
  1. ACTEMRA [Suspect]
     Active Substance: TOCILIZUMAB
     Indication: Rheumatoid arthritis
     Route: 042
     Dates: start: 20130815, end: 20150513
  2. ACTEMRA [Suspect]
     Active Substance: TOCILIZUMAB
     Route: 042
     Dates: start: 20150611
  3. ACTEMRA [Suspect]
     Active Substance: TOCILIZUMAB
     Route: 042
     Dates: start: 20150708, end: 20161116
  4. ACTEMRA [Suspect]
     Active Substance: TOCILIZUMAB
     Route: 042
     Dates: start: 20161213, end: 20161213
  5. ACTEMRA [Suspect]
     Active Substance: TOCILIZUMAB
     Route: 042
     Dates: start: 20170926, end: 20171220
  6. ACTEMRA [Suspect]
     Active Substance: TOCILIZUMAB
     Route: 042
     Dates: start: 20171024, end: 20171024
  7. ACTEMRA [Suspect]
     Active Substance: TOCILIZUMAB
     Dosage: ON HOLD
     Route: 042
     Dates: start: 20221216
  8. ACTEMRA [Suspect]
     Active Substance: TOCILIZUMAB
     Route: 042
     Dates: start: 20171220
  9. ZOPICLONE [Concomitant]
     Active Substance: ZOPICLONE
     Dosage: AT BED TIME
  10. MELOXICAM [Concomitant]
     Active Substance: MELOXICAM
  11. LYRICA [Concomitant]
     Active Substance: PREGABALIN
  12. TEGRETOL [Concomitant]
     Active Substance: CARBAMAZEPINE
  13. ROSUVASTATIN [Concomitant]
     Active Substance: ROSUVASTATIN
  14. PREGABALIN [Concomitant]
     Active Substance: PREGABALIN
  15. HYDROXYCHLOROQUINE [Concomitant]
     Active Substance: HYDROXYCHLOROQUINE
  16. CYMBALTA [Concomitant]
     Active Substance: DULOXETINE HYDROCHLORIDE
     Dosage: UNCERTAIN IF IT IS TWICE A DAY AS PER PHYSICIAN
  17. PANTOPRAZOLE SODIUM [Concomitant]
     Active Substance: PANTOPRAZOLE SODIUM
  18. ADVAIR HFA [Concomitant]
     Active Substance: FLUTICASONE PROPIONATE\SALMETEROL XINAFOATE
  19. ATROVENT [Concomitant]
     Active Substance: IPRATROPIUM BROMIDE
  20. PREDNISONE [Concomitant]
     Active Substance: PREDNISONE
     Indication: Product used for unknown indication
  21. PREDNISONE [Concomitant]
     Active Substance: PREDNISONE
  22. ATROVENT [Concomitant]
     Active Substance: IPRATROPIUM BROMIDE
  23. CRESTOR [Concomitant]
     Active Substance: ROSUVASTATIN CALCIUM
  24. LEVETIRACETAM [Concomitant]
     Active Substance: LEVETIRACETAM
  25. PLAQUENIL [Concomitant]
     Active Substance: HYDROXYCHLOROQUINE SULFATE
  26. SULFASALAZINE [Concomitant]
     Active Substance: SULFASALAZINE
  27. MELOXICAM [Concomitant]
     Active Substance: MELOXICAM
  28. XARELTO [Concomitant]
     Active Substance: RIVAROXABAN

REACTIONS (53)
  - Infection [Unknown]
  - Cerebrovascular accident [Unknown]
  - Seizure [Not Recovered/Not Resolved]
  - Synovial cyst [Recovered/Resolved]
  - Pulmonary artery aneurysm [Not Recovered/Not Resolved]
  - Erythema [Unknown]
  - Loss of consciousness [Not Recovered/Not Resolved]
  - Blood pressure diastolic abnormal [Unknown]
  - Blood pressure diastolic decreased [Unknown]
  - Arthralgia [Unknown]
  - Arthropathy [Unknown]
  - Nystagmus [Unknown]
  - Paraesthesia oral [Unknown]
  - Abdominal pain [Unknown]
  - Somnolence [Unknown]
  - Pneumonia [Unknown]
  - Blood creatine phosphokinase increased [Unknown]
  - Asthenia [Recovered/Resolved]
  - Infusion related reaction [Unknown]
  - Pain [Not Recovered/Not Resolved]
  - Blood pressure systolic abnormal [Unknown]
  - Skin laceration [Unknown]
  - Wound infection [Unknown]
  - Oxygen saturation decreased [Unknown]
  - Fall [Unknown]
  - Contusion [Unknown]
  - Hypoaesthesia oral [Unknown]
  - Rheumatoid arthritis [Not Recovered/Not Resolved]
  - Blood pressure increased [Unknown]
  - Malaise [Unknown]
  - Nausea [Recovering/Resolving]
  - Road traffic accident [Unknown]
  - Myalgia [Unknown]
  - Joint swelling [Not Recovered/Not Resolved]
  - Body temperature decreased [Unknown]
  - Weight increased [Not Recovered/Not Resolved]
  - Limb injury [Unknown]
  - Peripheral swelling [Not Recovered/Not Resolved]
  - Headache [Unknown]
  - Blood pressure fluctuation [Unknown]
  - Dry mouth [Unknown]
  - Hypoaesthesia oral [Unknown]
  - Visual impairment [Unknown]
  - Dizziness [Unknown]
  - Fatigue [Unknown]
  - Blood pressure systolic increased [Unknown]
  - Loss of consciousness [Unknown]
  - Head injury [Unknown]
  - Pulse absent [Unknown]
  - Ill-defined disorder [Unknown]
  - Resuscitation [Unknown]
  - Blood pressure diastolic increased [Unknown]
  - Head injury [Unknown]

NARRATIVE: CASE EVENT DATE: 20131201
